FAERS Safety Report 4570624-X (Version None)
Quarter: 2005Q1

REPORT INFORMATION
  Report Type: 
  Country: None (occurrence: None)
  Receive Date: 20050202
  Receipt Date: 20050202
  Transmission Date: 20050727
  Serious: Yes (Hospitalization)
  Sender: FDA-Public Use
  Company Number: None

PATIENT
  Age: 71 Year
  Sex: Male
  Weight: 51.2565 kg

DRUGS (4)
  1. FENTANYL [Suspect]
     Indication: PAIN
     Dosage: 25 MCG   Q 72 HOURS   TRANSDERMA
     Route: 062
     Dates: start: 20041101, end: 20050130
  2. LORAZEPAM [Suspect]
     Indication: ANXIETY
     Dosage: 0.5 MG   BID   ORAL
     Route: 048
     Dates: start: 20041101, end: 20050130
  3. HYDROCODONE BITARTRATE + ACETAMINOPHEN [Concomitant]
  4. DOXEPIN HCL [Concomitant]

REACTIONS (9)
  - CHRONIC OBSTRUCTIVE PULMONARY DISEASE [None]
  - DYSSTASIA [None]
  - LETHARGY [None]
  - MENTAL STATUS CHANGES [None]
  - OVERDOSE [None]
  - SEDATION [None]
  - SOMNOLENCE [None]
  - THERAPEUTIC AGENT TOXICITY [None]
  - URINARY TRACT INFECTION [None]
